FAERS Safety Report 6218729-1 (Version None)
Quarter: 2009Q2

REPORT INFORMATION
  Report Type: 
  Country: None (occurrence: None)
  Receive Date: 20090608
  Receipt Date: 20090526
  Transmission Date: 20091009
  Serious: Yes (Hospitalization)
  Sender: FDA-Public Use
  Company Number: US-ELI_LILLY_AND_COMPANY-US200905005100

PATIENT
  Sex: Female
  Weight: 117.91 kg

DRUGS (4)
  1. BYETTA [Suspect]
     Indication: TYPE 2 DIABETES MELLITUS
     Dosage: 5 UG, 2/D
     Route: 058
     Dates: start: 20070601, end: 20080401
  2. BYETTA [Suspect]
     Dosage: 5 UG, 2/D
     Route: 058
     Dates: start: 20090505
  3. METFORMIN HYDROCHLORIDE [Concomitant]
     Indication: DIABETES MELLITUS
  4. GLYBURIDE [Concomitant]
     Indication: DIABETES MELLITUS

REACTIONS (5)
  - ENDOMETRIAL CANCER [None]
  - INCREASED APPETITE [None]
  - UTERINE DISORDER [None]
  - VOMITING [None]
  - WEIGHT DECREASED [None]
